FAERS Safety Report 14598823 (Version 1)
Quarter: 2018Q1

REPORT INFORMATION
  Report Type: Spontaneous
  Country: GB (occurrence: GB)
  Receive Date: 20180305
  Receipt Date: 20180305
  Transmission Date: 20180509
  Serious: Yes (Death, Hospitalization, Other)
  Sender: FDA-Public Use
  Company Number: GB-MYLANLABS-2018M1013854

PATIENT
  Age: 13 Year
  Sex: Female

DRUGS (8)
  1. HYDROCORTISONE. [Suspect]
     Active Substance: HYDROCORTISONE
     Indication: ADRENAL INSUFFICIENCY
     Dosage: UNK
     Route: 065
     Dates: start: 20040228
  2. METHOTREXATE. [Suspect]
     Active Substance: METHOTREXATE
     Indication: STILL^S DISEASE
     Dosage: 15 MG/M2/WEEK
     Route: 058
  3. ETANERCEPT [Suspect]
     Active Substance: ETANERCEPT
     Dosage: 0.4 MG/KG/WEEK
     Route: 065
     Dates: start: 200305, end: 200401
  4. HYDROCORTISONE. [Suspect]
     Active Substance: HYDROCORTISONE
     Indication: HYPOTENSION
     Dosage: ADMINISTERED SECOND TIME DUE TO DEVELOPMENT OF HYPOTENSION
     Route: 065
     Dates: start: 20040229
  5. PREDNISOLONE. [Suspect]
     Active Substance: PREDNISOLONE
     Indication: STILL^S DISEASE
     Dosage: 0.5-1 MG/KG/DAY WITH ADJUSTING AND AIMING FOR ALTERNATE DAY REGIMEN WHENEVER POSSIBLE DEPENDING O...
     Route: 048
  6. ETANERCEPT [Suspect]
     Active Substance: ETANERCEPT
     Indication: STILL^S DISEASE
     Dosage: 0.4 MG/KG/WEEK
     Route: 065
     Dates: start: 200003, end: 200005
  7. INFLIXIMAB [Suspect]
     Active Substance: INFLIXIMAB
     Indication: STILL^S DISEASE
     Dosage: 5MG/KG SINGLE DOSE
     Route: 065
     Dates: start: 200402
  8. METHYLPREDNISOLONE. [Suspect]
     Active Substance: METHYLPREDNISOLONE
     Indication: STILL^S DISEASE
     Dosage: WEEKLY IV METHYLPREDNISOLONE PULSES (30 MG/KG/DAY;MAXIMUM 1G) GIVEN AS A 3-DAY COURSE OR A SINGLE...
     Route: 050

REACTIONS (12)
  - Hypotension [Unknown]
  - Pleural effusion [Unknown]
  - Cardio-respiratory arrest [Fatal]
  - Cushingoid [Not Recovered/Not Resolved]
  - Streptococcal infection [Fatal]
  - Adrenal atrophy [Unknown]
  - Cataract [Not Recovered/Not Resolved]
  - Osteoporosis [Not Recovered/Not Resolved]
  - Growth retardation [Not Recovered/Not Resolved]
  - Staphylococcal infection [Fatal]
  - Pulmonary congestion [Unknown]
  - Device related sepsis [Fatal]

NARRATIVE: CASE EVENT DATE: 200402
